FAERS Safety Report 9052633 (Version 2)
Quarter: 2013Q2

REPORT INFORMATION
  Report Type: Spontaneous
  Country: GB (occurrence: GB)
  Receive Date: 20130207
  Receipt Date: 20130404
  Transmission Date: 20140414
  Serious: Yes (Life-Threatening, Hospitalization, Other)
  Sender: FDA-Public Use
  Company Number: GB-US-EMD SERONO, INC.-7192186

PATIENT
  Age: 51 Year
  Sex: Male

DRUGS (1)
  1. REBIF [Suspect]
     Indication: PRODUCT USED FOR UNKNOWN INDICATION
     Route: 058
     Dates: end: 20121224

REACTIONS (8)
  - Sepsis [Recovering/Resolving]
  - Endophthalmitis [Unknown]
  - Malaise [Unknown]
  - Hepatic cyst [Unknown]
  - Multiple sclerosis relapse [Recovered/Resolved]
  - Endocarditis bacterial [Unknown]
  - Lung disorder [Unknown]
  - Confusional state [Unknown]
